FAERS Safety Report 6649734-9 (Version None)
Quarter: 2010Q1

REPORT INFORMATION
  Report Type: 
  Country: None (occurrence: None)
  Receive Date: 20100324
  Receipt Date: 20100324
  Transmission Date: 20100710
  Serious: Yes (Hospitalization)
  Sender: FDA-Public Use
  Company Number: None

PATIENT
  Age: 77 Year
  Sex: Male
  Weight: 54.55 kg

DRUGS (1)
  1. DEXTRAN 70 [Suspect]
     Dates: start: 20090914, end: 20090914

REACTIONS (2)
  - HYPOTENSION [None]
  - TACHYCARDIA [None]
